FAERS Safety Report 6098805-7 (Version None)
Quarter: 2009Q1

REPORT INFORMATION
  Report Type: 
  Country: None (occurrence: None)
  Receive Date: 20090302
  Receipt Date: 20090218
  Transmission Date: 20090719
  Serious: Yes (Hospitalization)
  Sender: FDA-Public Use
  Company Number: GB-PFIZER INC-2009173181

PATIENT

DRUGS (3)
  1. BLINDED *PLACEBO [Suspect]
     Indication: CARDIAC FAILURE
     Route: 048
  2. EPLERENONE [Suspect]
     Indication: CARDIAC FAILURE
     Route: 048
  3. WARFARIN [Concomitant]

REACTIONS (1)
  - TRANSIENT ISCHAEMIC ATTACK [None]
